FAERS Safety Report 24101927 (Version 3)
Quarter: 2024Q3

REPORT INFORMATION
  Report Type: Report from Study
  Country: CA (occurrence: CA)
  Receive Date: 20240717
  Receipt Date: 20240924
  Transmission Date: 20241016
  Serious: Yes (Hospitalization, Other)
  Sender: JOHNSON AND JOHNSON
  Company Number: CA-JNJFOC-20240731872

PATIENT
  Age: 7 Year
  Sex: Female
  Weight: 27 kg

DRUGS (3)
  1. REMICADE [Suspect]
     Active Substance: INFLIXIMAB
     Indication: Colitis ulcerative
     Route: 041
     Dates: start: 20240730
  2. REMICADE [Suspect]
     Active Substance: INFLIXIMAB
     Dosage: THIRD INDUCTION DOSE
     Route: 041
  3. REMICADE [Suspect]
     Active Substance: INFLIXIMAB
     Route: 041

REACTIONS (4)
  - Colitis ulcerative [Not Recovered/Not Resolved]
  - Growth failure [Unknown]
  - Drug level decreased [Unknown]
  - Off label use [Unknown]
